FAERS Safety Report 5840124-5 (Version None)
Quarter: 2008Q3

REPORT INFORMATION
  Report Type: 
  Country: None (occurrence: None)
  Receive Date: 20080811
  Receipt Date: 20080808
  Transmission Date: 20090109
  Serious: No
  Sender: FDA-Public Use
  Company Number: GB-EISAI MEDICAL RESEARCH-E2020-02871-SPO-GB

PATIENT
  Age: 79 Year
  Sex: Male
  Weight: 87.7 kg

DRUGS (6)
  1. ARICEPT [Suspect]
     Indication: DEMENTIA ALZHEIMER'S TYPE
     Route: 048
     Dates: start: 20080304, end: 20080310
  2. ASPIRIN [Concomitant]
     Route: 048
  3. OMEPRAZOLE [Concomitant]
  4. PYRIDOXINE HYDROCHLORIDE [Concomitant]
     Indication: TUBERCULOSIS
     Route: 048
  5. RIFINAH [Concomitant]
     Indication: TUBERCULOSIS
     Route: 048
     Dates: start: 20070501, end: 20080501
  6. SERTRALINE [Concomitant]
     Indication: DEPRESSION
     Route: 048
     Dates: start: 20070301

REACTIONS (4)
  - ACUTE PSYCHOSIS [None]
  - ANXIETY [None]
  - HALLUCINATION [None]
  - PARANOIA [None]
